FAERS Safety Report 15285197 (Version 1)
Quarter: 2018Q3

REPORT INFORMATION
  Report Type: Spontaneous
  Country: FR (occurrence: FR)
  Receive Date: 20180816
  Receipt Date: 20180816
  Transmission Date: 20181010
  Serious: Yes (Other)
  Sender: FDA-Public Use
  Company Number: FR-JNJFOC-20180810131

PATIENT
  Age: 80 Year
  Sex: Female
  Weight: 77 kg

DRUGS (5)
  1. RISPERIDONE. [Suspect]
     Active Substance: RISPERIDONE
     Indication: INTENTIONAL OVERDOSE
     Route: 048
  2. RISPERIDONE. [Suspect]
     Active Substance: RISPERIDONE
     Indication: INTENTIONAL OVERDOSE
     Route: 048
     Dates: start: 20180420, end: 20180420
  3. CANDESARTAN. [Suspect]
     Active Substance: CANDESARTAN
     Indication: INTENTIONAL OVERDOSE
     Route: 048
     Dates: start: 20180420, end: 20180420
  4. SPIFEN [Suspect]
     Active Substance: IBUPROFEN
     Indication: INTENTIONAL OVERDOSE
     Route: 048
     Dates: start: 20180420, end: 20180420
  5. ELIQUIS [Suspect]
     Active Substance: APIXABAN
     Indication: INTENTIONAL OVERDOSE
     Route: 048
     Dates: start: 20180420, end: 20180420

REACTIONS (7)
  - Hypotension [Recovered/Resolved]
  - Rhabdomyolysis [Recovering/Resolving]
  - Miosis [Recovered/Resolved]
  - Acute kidney injury [Recovered/Resolved]
  - Hypothermia [Recovered/Resolved]
  - Somnolence [Recovered/Resolved]
  - Intentional overdose [Unknown]

NARRATIVE: CASE EVENT DATE: 20180420
